FAERS Safety Report 22254477 (Version 1)
Quarter: 2023Q2

REPORT INFORMATION
  Report Type: Spontaneous
  Country: US (occurrence: None)
  Receive Date: 20230425
  Receipt Date: 20230425
  Transmission Date: 20230721
  Serious: Yes (unspecified)
  Sender: FDA-Public Use
  Company Number: None

PATIENT
  Age: 49 Year
  Sex: Female
  Weight: 61.2 kg

DRUGS (1)
  1. RHOFADE [Suspect]
     Active Substance: OXYMETAZOLINE HYDROCHLORIDE
     Indication: Skin discolouration
     Route: 061
     Dates: start: 20230420, end: 20230422

REACTIONS (11)
  - Urticaria [None]
  - Pharyngeal swelling [None]
  - Erythema [None]
  - Malaise [None]
  - Pain [None]
  - Lymphadenopathy [None]
  - Pruritus [None]
  - Erythema [None]
  - Swelling face [None]
  - Skin disorder [None]
  - Sensation of foreign body [None]

NARRATIVE: CASE EVENT DATE: 20230422
